FAERS Safety Report 24658973 (Version 1)
Quarter: 2024Q4

REPORT INFORMATION
  Report Type: Spontaneous
  Country: US (occurrence: None)
  Receive Date: 20241122
  Receipt Date: 20241122
  Transmission Date: 20250115
  Serious: Yes (Life-Threatening, Disabling)
  Sender: Public
  Company Number: None

PATIENT
  Age: 51 Year
  Sex: Male
  Weight: 146.25 kg

DRUGS (10)
  1. OZEMPIC [Suspect]
     Active Substance: SEMAGLUTIDE
     Indication: Weight decreased
     Dosage: WEEKLLY SUBCUTANEOUS?
     Route: 058
     Dates: start: 20240607, end: 20241109
  2. MOUNJARO [Suspect]
     Active Substance: TIRZEPATIDE
  3. DEVICE [Concomitant]
     Active Substance: DEVICE
  4. METFORMIN [Concomitant]
     Active Substance: METFORMIN HYDROCHLORIDE
  5. UNSPECIFIED INGREDIENT [Concomitant]
     Active Substance: UNSPECIFIED INGREDIENT
  6. ALLERGY MEDICATION [Concomitant]
     Active Substance: DIPHENHYDRAMINE HYDROCHLORIDE
  7. GABAPENTIN [Concomitant]
     Active Substance: GABAPENTIN
  8. Burberine [Concomitant]
  9. ALPHA LIPOIC ACID [Concomitant]
     Active Substance: .ALPHA.-LIPOIC ACID
  10. MAGNESIUM [Concomitant]
     Active Substance: MAGNESIUM

REACTIONS (10)
  - Nausea [None]
  - Vomiting [None]
  - Abdominal distension [None]
  - Impaired gastric emptying [None]
  - Abdominal pain [None]
  - Neuropathy peripheral [None]
  - Blood glucose increased [None]
  - Diabetes mellitus [None]
  - Product complaint [None]
  - Carbohydrate metabolism disorder [None]

NARRATIVE: CASE EVENT DATE: 20241119
